FAERS Safety Report 18411390 (Version 2)
Quarter: 2020Q4

REPORT INFORMATION
  Report Type: Spontaneous
  Country: EG (occurrence: EG)
  Receive Date: 20201021
  Receipt Date: 20201027
  Transmission Date: 20210114
  Serious: Yes (Other)
  Sender: FDA-Public Use
  Company Number: EG-ELI_LILLY_AND_COMPANY-EG202010005680

PATIENT
  Age: 14 Year
  Sex: Male

DRUGS (5)
  1. STRATTERA [Suspect]
     Active Substance: ATOMOXETINE HYDROCHLORIDE
     Indication: ATTENTION DEFICIT HYPERACTIVITY DISORDER
     Dosage: 20 MG, UNKNOWN
     Route: 065
  2. STRATTERA [Suspect]
     Active Substance: ATOMOXETINE HYDROCHLORIDE
     Dosage: 25 MG, UNKNOWN
     Route: 065
  3. ARIPIPREX [Concomitant]
     Indication: PRODUCT USED FOR UNKNOWN INDICATION
     Dosage: 10 MG, BID
  4. STRATTERA [Suspect]
     Active Substance: ATOMOXETINE HYDROCHLORIDE
     Dosage: 40 MG, UNKNOWN
     Route: 065
  5. DOGMATIL [Concomitant]
     Active Substance: SULPIRIDE
     Indication: PRODUCT USED FOR UNKNOWN INDICATION
     Dosage: 200 MG, BID

REACTIONS (16)
  - Eating disorder [Unknown]
  - Increased appetite [Unknown]
  - Sexually inappropriate behaviour [Unknown]
  - Anal incontinence [Unknown]
  - Aggression [Unknown]
  - Blood heavy metal increased [Unknown]
  - Urinary incontinence [Unknown]
  - Sleep disorder [Unknown]
  - Anger [Unknown]
  - Autism spectrum disorder [Unknown]
  - Mental impairment [Unknown]
  - Cognitive disorder [Unknown]
  - Prosopagnosia [Unknown]
  - Disturbance in attention [Unknown]
  - Aphasia [Unknown]
  - Gene mutation [Unknown]
